FAERS Safety Report 6357861-9 (Version None)
Quarter: 2009Q3

REPORT INFORMATION
  Report Type: 
  Country: None (occurrence: None)
  Receive Date: 20090911
  Receipt Date: 20090910
  Transmission Date: 20100115
  Serious: Yes (Death, Hospitalization)
  Sender: FDA-Public Use
  Company Number: AUR-APU-2009-00561

PATIENT
  Age: 25 Day
  Sex: Male

DRUGS (6)
  1. ZIDOVUDINE [Suspect]
     Indication: PROPHYLAXIS AGAINST HIV INFECTION
     Dosage: 4MG/KG - Q12HOURS FOR 7 DAYS AFTER BIRTH
  2. NEVIRAPINE [Suspect]
     Indication: PROPHYLAXIS AGAINST HIV INFECTION
     Dosage: 2MG/KG - X1
     Route: 064
  3. EMTRICITABINE AND TENOFOVIR DISOPROXIL FUMARATE [Suspect]
     Indication: PROPHYLAXIS AGAINST HIV INFECTION
     Dosage: 1 DOSE AFTER BIRTH
  4. NEVIRAPINE [Suspect]
     Indication: PROPHYLAXIS AGAINST HIV INFECTION
     Dosage: 200MG X1 TRANSPLACENTALLY 1 DOSE AT ONSET OF LABOR
     Route: 064
  5. ZIDOVUDINE [Suspect]
     Indication: PROPHYLAXIS AGAINST HIV INFECTION
     Dosage: 300MG BID TRANSPLACENTALLY DURING GESTATION
     Route: 064
  6. EMTRICITABINE AND TENOFOVIR DISOPROXIL FUMARATE [Suspect]
     Indication: PROPHYLAXIS AGAINST HIV INFECTION
     Dosage: 2 TABLETS X1 TRANSPLACENTALLY 1 DOSE PRIOR TO DELIVERY
     Route: 064

REACTIONS (3)
  - CAESAREAN SECTION [None]
  - MATERNAL DRUGS AFFECTING FOETUS [None]
  - MENINGITIS HAEMOPHILUS [None]
